FAERS Safety Report 9905056 (Version 2)
Quarter: 2014Q1

REPORT INFORMATION
  Report Type: Spontaneous
  Country: US (occurrence: US)
  Receive Date: 20140218
  Receipt Date: 20140218
  Transmission Date: 20141002
  Serious: No
  Sender: FDA-Public Use
  Company Number: US-GILEAD-2012-0051083

PATIENT
  Sex: Male

DRUGS (3)
  1. LETAIRIS [Suspect]
     Indication: PULMONARY HYPERTENSION
     Dosage: 5 MG, UNK
     Route: 048
     Dates: start: 20100205
  2. LETAIRIS [Suspect]
     Indication: CARCINOID SYNDROME
  3. EPOPROSTENOL [Concomitant]

REACTIONS (1)
  - Heart rate irregular [Unknown]
